FAERS Safety Report 13351602 (Version 2)
Quarter: 2017Q2

REPORT INFORMATION
  Report Type: Spontaneous
  Country: US (occurrence: US)
  Receive Date: 20170320
  Receipt Date: 20170410
  Transmission Date: 20170830
  Serious: No
  Sender: FDA-Public Use
  Company Number: US-PFIZER INC-2017049972

PATIENT
  Age: 69 Year
  Sex: Female
  Weight: 79.38 kg

DRUGS (8)
  1. SUTENT [Suspect]
     Active Substance: SUNITINIB MALATE
     Indication: METASTATIC RENAL CELL CARCINOMA
     Dosage: 37.5 MG, 1X/DAY (TAKES ONE AT BEDTIME)
     Route: 048
     Dates: start: 20170217, end: 20170322
  2. LIPITOR [Concomitant]
     Active Substance: ATORVASTATIN CALCIUM
     Dosage: UNK
  3. VERAPAMIL [Concomitant]
     Active Substance: VERAPAMIL HYDROCHLORIDE
     Indication: HYPERTENSION
     Dosage: 240 MG, 2X/DAY (ONE IN THE MORNING AND ONE AT NIGHT BY MOUTH)
     Route: 048
  4. VITAMIN B12 [Concomitant]
     Active Substance: CYANOCOBALAMIN
     Indication: VITAMIN SUPPLEMENTATION
     Dosage: 1000 MEQ, 1X/DAY
  5. KLOR-CON [Concomitant]
     Active Substance: POTASSIUM CHLORIDE
     Indication: BLOOD POTASSIUM
     Dosage: 20 MEQ, 1X/DAY
     Route: 048
  6. ATORVASTATIN [Concomitant]
     Active Substance: ATORVASTATIN
     Indication: BLOOD CHOLESTEROL INCREASED
     Dosage: 40 MG, 1X/DAY
  7. LISINOPRIL + HIDROCLOROTIAZIDA [Concomitant]
     Active Substance: HYDROCHLOROTHIAZIDE\LISINOPRIL
     Dosage: UNK, 2X/DAY [LISINOPRIL- 10 MG]/[HYDROCHLOROTHIAZIDE- 12.5 MG]
     Route: 048
     Dates: start: 20170303
  8. LISINOPRIL + HIDROCLOROTIAZIDA [Concomitant]
     Active Substance: HYDROCHLOROTHIAZIDE\LISINOPRIL
     Indication: HYPERTENSION
     Dosage: UNK, 1X/DAY [LISINOPRIL- 10 MG]/[HYDROCHLOROTHIAZIDE- 12.5 MG]
     Route: 048

REACTIONS (14)
  - Feeling abnormal [Unknown]
  - Platelet count decreased [Not Recovered/Not Resolved]
  - Feeding disorder [Recovered/Resolved]
  - Decreased appetite [Unknown]
  - Frequent bowel movements [Recovered/Resolved]
  - Dysgeusia [Not Recovered/Not Resolved]
  - Blood pressure increased [Recovered/Resolved]
  - Chromaturia [Unknown]
  - Faeces discoloured [Unknown]
  - Diarrhoea [Recovered/Resolved]
  - Memory impairment [Unknown]
  - Nausea [Unknown]
  - Oral pain [Recovered/Resolved]
  - Ageusia [Not Recovered/Not Resolved]

NARRATIVE: CASE EVENT DATE: 201702
